FAERS Safety Report 5132710-5 (Version None)
Quarter: 2006Q4

REPORT INFORMATION
  Report Type: 
  Country: None (occurrence: None)
  Receive Date: 20061023
  Receipt Date: 20061017
  Transmission Date: 20070319
  Serious: Yes (Death)
  Sender: FDA-Public Use
  Company Number: US-GLAXOSMITHKLINE-A0624126A

PATIENT
  Age: 27 Year
  Sex: Female

DRUGS (9)
  1. SEREVENT [Suspect]
     Indication: ASTHMA
     Route: 055
     Dates: start: 20030916, end: 20040808
  2. SEREVENT [Suspect]
     Dosage: 2PUFF TWICE PER DAY
     Route: 055
     Dates: end: 20030325
  3. SEREVENT [Suspect]
     Dosage: 2PUFF TWICE PER DAY
     Route: 055
     Dates: start: 19980512, end: 20001101
  4. FLOVENT [Concomitant]
     Indication: ASTHMA
     Route: 055
     Dates: start: 20001101
  5. ALBUTEROL [Concomitant]
  6. SINGULAIR [Concomitant]
  7. VICODIN [Concomitant]
     Indication: TOOTHACHE
     Dates: end: 20040801
  8. THEOPHYLLINE [Concomitant]
  9. VANCERIL [Concomitant]

REACTIONS (15)
  - ASTHMA [None]
  - BRADYCARDIA [None]
  - CARDIAC ARREST [None]
  - CARDIO-RESPIRATORY ARREST [None]
  - CYANOSIS [None]
  - DEPRESSED LEVEL OF CONSCIOUSNESS [None]
  - DYSPNOEA [None]
  - LUNG INFILTRATION [None]
  - PNEUMONIA [None]
  - PULSE ABSENT [None]
  - RESPIRATORY ARREST [None]
  - RESPIRATORY FAILURE [None]
  - STATUS ASTHMATICUS [None]
  - TACHYCARDIA [None]
  - WHEEZING [None]
